FAERS Safety Report 20353878 (Version 1)
Quarter: 2022Q1

REPORT INFORMATION
  Report Type: Spontaneous
  Country: CN (occurrence: CN)
  Receive Date: 20220120
  Receipt Date: 20220120
  Transmission Date: 20220424
  Serious: Yes (Death)
  Sender: FDA-Public Use
  Company Number: CN-LUPIN PHARMACEUTICALS INC.-2022-00513

PATIENT
  Age: 67 Year
  Sex: Male

DRUGS (8)
  1. METHYLPREDNISOLONE [Suspect]
     Active Substance: METHYLPREDNISOLONE
     Indication: Myelodysplastic syndrome unclassifiable
     Dosage: 40 MILLIGRAM, QD
     Route: 042
  2. METHYLPREDNISOLONE [Suspect]
     Active Substance: METHYLPREDNISOLONE
     Indication: Dermatitis exfoliative generalised
     Dosage: 28 MILLIGRAM, QD
     Route: 048
  3. METHYLPREDNISOLONE [Suspect]
     Active Substance: METHYLPREDNISOLONE
     Dosage: 18 MILLIGRAM, QD
     Route: 065
  4. METHYLPREDNISOLONE [Suspect]
     Active Substance: METHYLPREDNISOLONE
     Dosage: 8 MILLIGRAM, QD
     Route: 065
  5. METHYLPREDNISOLONE [Suspect]
     Active Substance: METHYLPREDNISOLONE
     Dosage: 4 MILLIGRAM, QD
     Route: 065
  6. DECITABINE [Suspect]
     Active Substance: DECITABINE
     Indication: Dermatitis exfoliative generalised
     Dosage: UNK
     Route: 065
  7. ERYTHROPOIETIN [Concomitant]
     Active Substance: ERYTHROPOIETIN
     Indication: Supportive care
     Dosage: UNK
     Route: 065
  8. THALIDOMIDE [Concomitant]
     Active Substance: THALIDOMIDE
     Indication: Supportive care
     Dosage: UNK
     Route: 065

REACTIONS (2)
  - Infection [Fatal]
  - Off label use [Unknown]
